FAERS Safety Report 5121145-7 (Version None)
Quarter: 2006Q4

REPORT INFORMATION
  Report Type: 
  Country: None (occurrence: None)
  Receive Date: 20061002
  Receipt Date: 20060920
  Transmission Date: 20070319
  Serious: Yes (Hospitalization, Other)
  Sender: FDA-Public Use
  Company Number: 147878ISR

PATIENT
  Age: 37 Year
  Sex: Male

DRUGS (4)
  1. CISPLATIN [Suspect]
     Indication: TESTIS CANCER
     Dosage: FOUR CYCLES, OVER 3 DAYS EVERY 3 WEEKS AFTER ONE MONTH-TWO ADDITIONAL CYCLES FOR 5 DAYS
  2. ETOPOSIDE [Suspect]
     Indication: TESTIS CANCER
     Dosage: FOUR CYCLES OF 120 MG/M2 OVER 3 DAYS EVERY 3 WEEKS, TWO CYCLES OF 75 MG/M2 OVER 5 DAYS
  3. BLEOMYCIN [Suspect]
     Indication: TESTIS CANCER
     Dosage: (15 MG, 3 WK)
  4. IFOSFAMIDE [Suspect]
     Indication: TESTIS CANCER
     Dosage: (1200 MG/M2, 2 CYCLICAL)

REACTIONS (3)
  - CHONDROSARCOMA [None]
  - LYMPHADENOPATHY [None]
  - MALIGNANT TRANSFORMATION [None]
